FAERS Safety Report 6740253-8 (Version None)
Quarter: 2010Q2

REPORT INFORMATION
  Report Type: 
  Country: None (occurrence: None)
  Receive Date: 20100521
  Receipt Date: 20100507
  Transmission Date: 20101027
  Serious: Yes (Hospitalization)
  Sender: FDA-Public Use
  Company Number: MPS1-1000326

PATIENT
  Age: 19 Year
  Sex: Female
  Weight: 42 kg

DRUGS (1)
  1. ALDURAZYME [Suspect]
     Indication: MUCOPOLYSACCHARIDOSIS I
     Dates: start: 20081008

REACTIONS (4)
  - AORTIC VALVE REPLACEMENT [None]
  - CARDIAC FAILURE [None]
  - MITRAL VALVE REPLACEMENT [None]
  - OEDEMA [None]
